FAERS Safety Report 9107862 (Version 1)
Quarter: 2013Q1

REPORT INFORMATION
  Report Type: Spontaneous
  Country: US (occurrence: US)
  Receive Date: 20130221
  Receipt Date: 20130221
  Transmission Date: 20140127
  Serious: No
  Sender: FDA-Public Use
  Company Number: US-PFIZER INC-2013059789

PATIENT
  Age: 90 Year
  Sex: Female
  Weight: 56.69 kg

DRUGS (5)
  1. PHOSPHOLINE IODIDE [Suspect]
     Indication: GLAUCOMA
     Dosage: UNK, 2X/DAY
     Route: 047
     Dates: start: 201301
  2. ENALAPRIL [Concomitant]
     Indication: HYPERTENSION
     Dosage: 20 MG, 1X/DAY
  3. NIFEDIPINE [Concomitant]
     Indication: HYPERTENSION
     Dosage: 30 MG, 1X/DAY
  4. SIMVASTATIN [Concomitant]
     Dosage: 10 MG, UNK
  5. ACETYLSALICYLIC ACID [Concomitant]
     Dosage: 81 MG, 1X/DAY

REACTIONS (1)
  - Flatulence [Not Recovered/Not Resolved]
